FAERS Safety Report 7559768-8 (Version None)
Quarter: 2011Q2

REPORT INFORMATION
  Report Type: 
  Country: None (occurrence: None)
  Receive Date: 20110621
  Receipt Date: 20110611
  Transmission Date: 20111010
  Serious: Yes (Other)
  Sender: FDA-Public Use
  Company Number: IR-ROCHE-782075

PATIENT
  Age: 35 Year
  Sex: Female

DRUGS (4)
  1. ACTEMRA [Suspect]
     Dosage: LAST DOSE : 01-08-2010, FREQUENCY : 1.
     Route: 042
     Dates: start: 20100801
  2. ACTEMRA [Suspect]
     Dosage: LAST DOSE: 01-07-2010, FREQUENCY : 1.
     Route: 042
     Dates: start: 20100701
  3. ACTEMRA [Suspect]
     Dosage: LAST DOSE: 01-09-2010, FREQUENCY : 1
     Route: 042
     Dates: start: 20100901
  4. ACTEMRA [Suspect]
     Dosage: FREQUENCY: 1.
     Route: 042
     Dates: start: 20101101, end: 20101101

REACTIONS (2)
  - GINGIVAL BLEEDING [None]
  - ORAL HERPES [None]
